FAERS Safety Report 17022564 (Version 3)
Quarter: 2019Q4

REPORT INFORMATION
  Report Type: Spontaneous
  Country: FR (occurrence: FR)
  Receive Date: 20191112
  Receipt Date: 20191202
  Transmission Date: 20200122
  Serious: Yes (Other)
  Sender: FDA-Public Use
  Company Number: FR-009507513-1911FRA001847

PATIENT
  Age: 20 Year
  Sex: Female
  Weight: 42 kg

DRUGS (1)
  1. NEXPLANON [Suspect]
     Active Substance: ETONOGESTREL
     Dosage: 1 IMPLANT, LEFT ARM
     Route: 059
     Dates: start: 20160422, end: 20180419

REACTIONS (2)
  - Unintended pregnancy [Recovered/Resolved]
  - Pregnancy with implant contraceptive [Recovered/Resolved]

NARRATIVE: CASE EVENT DATE: 20180419
